FAERS Safety Report 4978904-0 (Version None)
Quarter: 2006Q2

REPORT INFORMATION
  Report Type: 
  Country: None (occurrence: None)
  Receive Date: 20060421
  Receipt Date: 20060412
  Transmission Date: 20061013
  Serious: Yes (Other)
  Sender: FDA-Public Use
  Company Number: US-JNJFOC-20060402962

PATIENT
  Sex: Female

DRUGS (1)
  1. REMICADE [Suspect]
     Indication: RHEUMATOID ARTHRITIS
     Dosage: 4 VIALS
     Route: 042

REACTIONS (3)
  - CHEST DISCOMFORT [None]
  - COLLAPSE OF LUNG [None]
  - PLEURAL EFFUSION [None]
